FAERS Safety Report 15587701 (Version 5)
Quarter: 2020Q4

REPORT INFORMATION
  Report Type: Spontaneous
  Country: JP (occurrence: JP)
  Receive Date: 20181105
  Receipt Date: 20201013
  Transmission Date: 20210113
  Serious: Yes (Hospitalization, Other)
  Sender: FDA-Public Use
  Company Number: JP-JNJFOC-20181041087

PATIENT
  Age: 2 Year
  Sex: Male
  Weight: 19 kg

DRUGS (20)
  1. REMICADE [Suspect]
     Active Substance: INFLIXIMAB
     Route: 042
     Dates: start: 20150325, end: 20150520
  2. FREEZE DRIED GLUTAMATE BCG VACCINE (JAPAN) [Suspect]
     Active Substance: BACILLUS CALMETTE-GUERIN SUBSTRAIN TOKYO 172-1 LIVE ANTIGEN
     Indication: ANTIBIOTIC PROPHYLAXIS
  3. IMURAN [Suspect]
     Active Substance: AZATHIOPRINE
     Indication: PRODUCT USED FOR UNKNOWN INDICATION
     Route: 065
  4. PREDNISOLONE. [Concomitant]
     Active Substance: PREDNISOLONE
     Indication: INFLAMMATORY BOWEL DISEASE
  5. BIO-THREE [Concomitant]
     Active Substance: HERBALS
     Route: 065
  6. REMICADE [Suspect]
     Active Substance: INFLIXIMAB
     Route: 042
     Dates: start: 20171120, end: 20180110
  7. HEPARINOID [Concomitant]
     Active Substance: CHONDROITIN SULFATE (BOVINE)
     Route: 061
  8. REMICADE [Suspect]
     Active Substance: INFLIXIMAB
     Indication: CROHN^S DISEASE
     Route: 042
     Dates: start: 20141031, end: 20141031
  9. REMICADE [Suspect]
     Active Substance: INFLIXIMAB
     Indication: INFLAMMATORY BOWEL DISEASE
     Route: 042
     Dates: start: 20141114, end: 20141114
  10. REMICADE [Suspect]
     Active Substance: INFLIXIMAB
     Route: 042
     Dates: start: 20160531, end: 20170731
  11. FREEZE DRIED GLUTAMATE BCG VACCINE (JAPAN) [Suspect]
     Active Substance: BACILLUS CALMETTE-GUERIN SUBSTRAIN TOKYO 172-1 LIVE ANTIGEN
     Indication: IMMUNISATION
  12. MESALAZINE [Concomitant]
     Active Substance: MESALAMINE
     Route: 048
  13. BIOLACTIS [Concomitant]
     Active Substance: LACTOBACILLUS CASEI
     Route: 048
  14. REMICADE [Suspect]
     Active Substance: INFLIXIMAB
     Route: 042
     Dates: start: 20150204, end: 20150204
  15. REMICADE [Suspect]
     Active Substance: INFLIXIMAB
     Route: 042
     Dates: start: 20150714, end: 20150908
  16. REMICADE [Suspect]
     Active Substance: INFLIXIMAB
     Route: 042
     Dates: start: 20141219, end: 20141219
  17. REMICADE [Suspect]
     Active Substance: INFLIXIMAB
     Route: 042
     Dates: start: 20180305, end: 20180305
  18. FREEZE DRIED GLUTAMATE BCG VACCINE (JAPAN) [Suspect]
     Active Substance: BACILLUS CALMETTE-GUERIN SUBSTRAIN TOKYO 172-1 LIVE ANTIGEN
     Indication: IMMUNISATION
     Route: 065
  19. ALFAROL [Concomitant]
     Active Substance: ALFACALCIDOL
     Route: 048
  20. REMICADE [Suspect]
     Active Substance: INFLIXIMAB
     Route: 042
     Dates: start: 20170925, end: 20170925

REACTIONS (5)
  - Product use issue [Unknown]
  - Lymph node tuberculosis [Recovering/Resolving]
  - Disseminated Bacillus Calmette-Guerin infection [Recovering/Resolving]
  - Off label use [Unknown]
  - Contraindication to vaccination [Unknown]

NARRATIVE: CASE EVENT DATE: 20141031
